FAERS Safety Report 9425902 (Version 1)
Quarter: 2013Q3

REPORT INFORMATION
  Report Type: Spontaneous
  Country: FR (occurrence: FR)
  Receive Date: 20130729
  Receipt Date: 20130729
  Transmission Date: 20140515
  Serious: Yes (Hospitalization)
  Sender: FDA-Public Use
  Company Number: FR-UCBSA-092524

PATIENT
  Age: 67 Year
  Sex: Male

DRUGS (4)
  1. KEPPRA [Suspect]
     Indication: PARTIAL SEIZURES
     Route: 048
     Dates: start: 2010, end: 201303
  2. CANDESARTAN CILEXETIL [Suspect]
     Route: 048
     Dates: start: 201204
  3. NEBIVOLOL [Suspect]
     Route: 048
     Dates: start: 201204
  4. KARDEGIC [Suspect]
     Dosage: POWDER FOR ORAL SOLUTION IN DOSE-BAG
     Route: 048
     Dates: start: 201204

REACTIONS (1)
  - Eczema nummular [Recovered/Resolved]
